FAERS Safety Report 11149364 (Version 1)
Quarter: 2015Q2

REPORT INFORMATION
  Report Type: Spontaneous
  Country: US (occurrence: None)
  Receive Date: 20150528
  Receipt Date: 20150528
  Transmission Date: 20150821
  Serious: Yes (Hospitalization, Disabling)
  Sender: FDA-Public Use
  Company Number: None

PATIENT
  Age: 57 Year
  Sex: Female
  Weight: 93.9 kg

DRUGS (5)
  1. LIPITOR [Concomitant]
     Active Substance: ATORVASTATIN CALCIUM
  2. NEXIMUM [Concomitant]
  3. INVOKANA [Suspect]
     Active Substance: CANAGLIFLOZIN
     Indication: GLYCOSYLATED HAEMOGLOBIN INCREASED
     Dosage: 100 MG/1 PILL
     Route: 048
     Dates: start: 20141223, end: 20150210
  4. INSULIN (HUMALOG + LEVEMIR) [Concomitant]
  5. ENALAPRIL [Concomitant]
     Active Substance: ENALAPRIL

REACTIONS (5)
  - Hypotension [None]
  - Dizziness [None]
  - Syncope [None]
  - Red blood cell count decreased [None]
  - Urinary tract infection [None]

NARRATIVE: CASE EVENT DATE: 20150324
